FAERS Safety Report 24305557 (Version 2)
Quarter: 2024Q3

REPORT INFORMATION
  Report Type: Spontaneous
  Country: BE (occurrence: BE)
  Receive Date: 20240911
  Receipt Date: 20240918
  Transmission Date: 20241017
  Serious: Yes (Other)
  Sender: AMGEN
  Company Number: BE-AMGEN-BELSP2024177887

PATIENT
  Age: 47 Year
  Sex: Female

DRUGS (4)
  1. OTEZLA [Suspect]
     Active Substance: APREMILAST
     Indication: Psoriasis
     Dosage: UNK, UNK
     Route: 065
     Dates: end: 2024
  2. LAMICTAL [Concomitant]
     Active Substance: LAMOTRIGINE
     Indication: Epilepsy
     Route: 065
  3. BRIVIACT [Concomitant]
     Active Substance: BRIVARACETAM
     Indication: Epilepsy
     Route: 065
  4. CLOBAZAM [Concomitant]
     Active Substance: CLOBAZAM
     Indication: Epilepsy
     Route: 065

REACTIONS (2)
  - Epilepsy [Recovering/Resolving]
  - Psoriasis [Unknown]
